FAERS Safety Report 10079994 (Version 1)
Quarter: 2014Q2

REPORT INFORMATION
  Report Type: Spontaneous
  Country: US (occurrence: US)
  Receive Date: 20140415
  Receipt Date: 20140415
  Transmission Date: 20141212
  Serious: Yes (Other)
  Sender: FDA-Public Use
  Company Number: US-TEVA-475655USA

PATIENT
  Age: 37 Year
  Sex: Female
  Weight: 87.17 kg

DRUGS (2)
  1. PARAGARD 380A [Suspect]
     Indication: POST COITAL CONTRACEPTION
     Route: 015
     Dates: start: 20140210
  2. XANAX [Concomitant]
     Indication: ANXIETY

REACTIONS (1)
  - Device dislocation [Not Recovered/Not Resolved]
